FAERS Safety Report 15370016 (Version 1)
Quarter: 2018Q3

REPORT INFORMATION
  Report Type: Spontaneous
  Country: AX (occurrence: AX)
  Receive Date: 20180904
  Receipt Date: 20180904
  Transmission Date: 20181010
  Serious: Yes (Hospitalization)
  Sender: FDA-Public Use
  Company Number: None

PATIENT
  Age: 35 Year
  Sex: Female

DRUGS (18)
  1. XELJANZ [Suspect]
     Active Substance: TOFACITINIB CITRATE
     Indication: RHEUMATOID ARTHRITIS
     Route: 048
     Dates: start: 20180501
  2. CLONAZEPAM. [Concomitant]
     Active Substance: CLONAZEPAM
  3. PROMETHAZINE [Concomitant]
     Active Substance: PROMETHAZINE\PROMETHAZINE HYDROCHLORIDE
  4. MELOXICAM. [Concomitant]
     Active Substance: MELOXICAM
  5. SUMATRIPTAN. [Concomitant]
     Active Substance: SUMATRIPTAN
  6. TROKENDI [Concomitant]
     Active Substance: TOPIRAMATE
  7. HYDROXYZ [Concomitant]
     Active Substance: HYDROXYZINE HYDROCHLORIDE
  8. LEVETIRACETAM. [Concomitant]
     Active Substance: LEVETIRACETAM
  9. MONTELUKAST [Concomitant]
     Active Substance: MONTELUKAST SODIUM
  10. ORENCIA [Suspect]
     Active Substance: ABATACEPT
     Indication: RHEUMATOID ARTHRITIS
     Dosage: ?          OTHER FREQUENCY:QWK;?
     Route: 058
     Dates: start: 20151103
  11. FLUTICASONE. [Concomitant]
     Active Substance: FLUTICASONE
  12. LYRICA [Concomitant]
     Active Substance: PREGABALIN
  13. FOLIC ACID. [Concomitant]
     Active Substance: FOLIC ACID
  14. MOBIC [Concomitant]
     Active Substance: MELOXICAM
  15. OXCARBAZEPINE. [Concomitant]
     Active Substance: OXCARBAZEPINE
  16. NARATRIPTAN [Concomitant]
     Active Substance: NARATRIPTAN HYDROCHLORIDE
  17. OXYCONTIN [Concomitant]
     Active Substance: OXYCODONE HYDROCHLORIDE
  18. PREDNISONE. [Concomitant]
     Active Substance: PREDNISONE

REACTIONS (5)
  - Swelling face [None]
  - Facial pain [None]
  - Hypersensitivity [None]
  - Throat tightness [None]
  - Pain in extremity [None]

NARRATIVE: CASE EVENT DATE: 20180904
